FAERS Safety Report 11926842 (Version 14)
Quarter: 2017Q3

REPORT INFORMATION
  Report Type: Report from Study
  Country: FR (occurrence: FR)
  Receive Date: 20160119
  Receipt Date: 20170809
  Transmission Date: 20171127
  Serious: Yes (Death, Life-Threatening, Hospitalization, Other)
  Sender: FDA-Public Use
  Company Number: PHHY2016FR005034

PATIENT
  Age: 67 Year
  Sex: Female

DRUGS (5)
  1. AFINITOR [Suspect]
     Active Substance: EVEROLIMUS
     Indication: BREAST CANCER
     Dosage: 10 MG, QD
     Route: 065
     Dates: start: 20151130
  2. HEPARIN [Concomitant]
     Active Substance: HEPARIN SODIUM
     Indication: PRODUCT USED FOR UNKNOWN INDICATION
     Route: 065
  3. INNOHEP [Suspect]
     Active Substance: TINZAPARIN SODIUM
     Indication: PULMONARY EMBOLISM
     Dosage: 10000 IU, 0.5 ML DAILY
     Route: 065
     Dates: start: 20151120, end: 20151203
  4. EXEMESTANE. [Concomitant]
     Active Substance: EXEMESTANE
     Indication: BREAST CANCER
     Dosage: 25 MG, UNK
     Route: 048
     Dates: start: 20151130
  5. AFINITOR [Suspect]
     Active Substance: EVEROLIMUS
     Indication: METASTASES TO BONE

REACTIONS (41)
  - Cardiac failure [Fatal]
  - Crepitations [Fatal]
  - Pleural effusion [Fatal]
  - Palpitations [Unknown]
  - Protein total decreased [Unknown]
  - Gamma-glutamyltransferase increased [Unknown]
  - Haemoglobin decreased [Unknown]
  - Asthenia [Fatal]
  - Dyspnoea [Fatal]
  - Tachycardia [Fatal]
  - Dilatation ventricular [Fatal]
  - Arterial occlusive disease [Recovered/Resolved with Sequelae]
  - Blood sodium decreased [Unknown]
  - Neutrophil count increased [Unknown]
  - Red blood cell count decreased [Unknown]
  - Haematocrit decreased [Unknown]
  - Lymphocyte count decreased [Unknown]
  - Tricuspid valve incompetence [Unknown]
  - General physical health deterioration [Fatal]
  - Oedema peripheral [Fatal]
  - Mitral valve incompetence [Unknown]
  - Wheezing [Unknown]
  - Blood urea increased [Unknown]
  - Pulmonary oedema [Fatal]
  - Orthopnoea [Fatal]
  - Myocardial infarction [Recovered/Resolved with Sequelae]
  - Heparin-induced thrombocytopenia [Recovered/Resolved]
  - Blood potassium decreased [Unknown]
  - Hypotension [Unknown]
  - Decreased appetite [Unknown]
  - Blood albumin decreased [Unknown]
  - Myocardial necrosis [Unknown]
  - Malaise [Unknown]
  - Blood chloride decreased [Unknown]
  - Pyrexia [Fatal]
  - Blood pressure systolic decreased [Fatal]
  - Sinus rhythm [Unknown]
  - Fatigue [Unknown]
  - Dressler^s syndrome [Recovered/Resolved with Sequelae]
  - Hypercalcaemia [Unknown]
  - Blood bicarbonate increased [Unknown]

NARRATIVE: CASE EVENT DATE: 20151203
